FAERS Safety Report 25175915 (Version 3)
Quarter: 2025Q2

REPORT INFORMATION
  Report Type: Spontaneous
  Country: US (occurrence: US)
  Receive Date: 20250409
  Receipt Date: 20250530
  Transmission Date: 20250717
  Serious: Yes (Other)
  Sender: PFIZER
  Company Number: US-PFIZER INC-202500023452

PATIENT
  Age: 57 Year
  Sex: Female
  Weight: 88.1 kg

DRUGS (21)
  1. XELJANZ XR [Suspect]
     Active Substance: TOFACITINIB CITRATE
     Indication: Rheumatoid arthritis
     Dosage: 11 MG, 1X/DAY
     Route: 048
     Dates: start: 202212, end: 202309
  2. XELJANZ XR [Suspect]
     Active Substance: TOFACITINIB CITRATE
     Dosage: 11 MG, 1X/DAY
     Route: 048
     Dates: start: 202412, end: 20250410
  3. XELJANZ XR [Suspect]
     Active Substance: TOFACITINIB CITRATE
     Dosage: 11 MG, 1X/DAY
     Route: 048
     Dates: start: 20250106, end: 20250410
  4. XELJANZ XR [Suspect]
     Active Substance: TOFACITINIB CITRATE
     Dosage: 11 MG, DAILY
     Route: 048
     Dates: start: 20250106, end: 20250506
  5. CYMBALTA [Concomitant]
     Active Substance: DULOXETINE HYDROCHLORIDE
  6. JUBLIA [Concomitant]
     Active Substance: EFINACONAZOLE
  7. SOOLANTRA [Concomitant]
     Active Substance: IVERMECTIN
  8. LEVOTHYROXINE SODIUM [Concomitant]
     Active Substance: LEVOTHYROXINE SODIUM
  9. SIMVASTATIN [Concomitant]
     Active Substance: SIMVASTATIN
  10. ESTRADIOL [Concomitant]
     Active Substance: ESTRADIOL
  11. CELECOXIB [Concomitant]
     Active Substance: CELECOXIB
  12. RHOFADE [Concomitant]
     Active Substance: OXYMETAZOLINE HYDROCHLORIDE
  13. VALACYCLOVIR HYDROCHLORIDE [Concomitant]
     Active Substance: VALACYCLOVIR HYDROCHLORIDE
  14. FIORICET [Concomitant]
     Active Substance: ACETAMINOPHEN\BUTALBITAL\CAFFEINE
  15. LYRICA [Concomitant]
     Active Substance: PREGABALIN
  16. LISINOPRIL [Concomitant]
     Active Substance: LISINOPRIL
  17. MELOXICAM [Concomitant]
     Active Substance: MELOXICAM
  18. TOLTERODINE TARTRATE [Concomitant]
     Active Substance: TOLTERODINE TARTRATE
  19. FISH OIL [Concomitant]
     Active Substance: FISH OIL
  20. TOLTERODINE [Concomitant]
     Active Substance: TOLTERODINE
  21. LEVOTHYROXINE [Concomitant]
     Active Substance: LEVOTHYROXINE

REACTIONS (10)
  - Balance disorder [Recovering/Resolving]
  - Fall [Recovering/Resolving]
  - Foot fracture [Recovering/Resolving]
  - Drug ineffective [Recovered/Resolved]
  - Condition aggravated [Unknown]
  - Bone pain [Unknown]
  - Amnesia [Recovering/Resolving]
  - Brain fog [Recovered/Resolved]
  - Headache [Recovered/Resolved]
  - Vaginal infection [Recovered/Resolved]

NARRATIVE: CASE EVENT DATE: 20250101
